FAERS Safety Report 18755268 (Version 2)
Quarter: 2022Q3

REPORT INFORMATION
  Report Type: Spontaneous
  Country: JP (occurrence: JP)
  Receive Date: 20210119
  Receipt Date: 20220714
  Transmission Date: 20221027
  Serious: Yes (Other)
  Sender: FDA-Public Use
  Company Number: JP-GSKNCCC-CASE-01121851_AE-39093

PATIENT

DRUGS (11)
  1. ZANTAC [Suspect]
     Active Substance: RANITIDINE HYDROCHLORIDE
     Dosage: 150 MG, BID
     Route: 048
  2. LANSOPRAZOLE [Suspect]
     Active Substance: LANSOPRAZOLE
     Dosage: UNK
     Route: 048
  3. RABEPRAZOLE SODIUM [Suspect]
     Active Substance: RABEPRAZOLE SODIUM
     Dosage: UNK
     Route: 048
  4. NEXIUM [Suspect]
     Active Substance: ESOMEPRAZOLE MAGNESIUM
     Dosage: UNK
     Route: 048
  5. BUCILLAMINE [Concomitant]
     Active Substance: BUCILLAMINE
     Indication: Rheumatic disorder
     Dosage: 50 MG, BID
     Route: 048
  6. BUCILLAMINE [Concomitant]
     Active Substance: BUCILLAMINE
     Dosage: 75 MG, BID
     Route: 048
  7. BUCILLAMINE [Concomitant]
     Active Substance: BUCILLAMINE
     Dosage: UNK UNK, 1D
     Route: 048
     Dates: start: 2020, end: 2020
  8. SELBEX FINE GRANULES 10% [Concomitant]
     Dosage: 0.5 G, BID
     Route: 048
  9. CYANOCOBALAMIN\PYRIDOXINE HYDROCHLORIDE\THIAMINE [Concomitant]
     Active Substance: CYANOCOBALAMIN\PYRIDOXINE HYDROCHLORIDE\THIAMINE
     Indication: Rheumatic disorder
     Dosage: 1 DF, BID
     Route: 048
  10. BOIOGITO [Concomitant]
     Indication: Rheumatic disorder
     Dosage: UNK UNK, BID
  11. EPPIKAJUTSUTO [Concomitant]
     Indication: Rheumatic disorder
     Dosage: UNK, BID

REACTIONS (10)
  - Eye haemorrhage [Unknown]
  - Corneal infiltrates [Recovered/Resolved]
  - Oropharyngeal pain [Recovered/Resolved]
  - Diarrhoea [Recovered/Resolved]
  - Rheumatic disorder [Unknown]
  - Condition aggravated [Unknown]
  - Peripheral swelling [Unknown]
  - Pain [Unknown]
  - Gait inability [Unknown]
  - Therapeutic response unexpected [Unknown]
